FAERS Safety Report 15271684 (Version 1)
Quarter: 2018Q3

REPORT INFORMATION
  Report Type: Spontaneous
  Country: US (occurrence: US)
  Receive Date: 20180727
  Receipt Date: 20180727
  Transmission Date: 20181010
  Serious: Yes (Disabling)
  Sender: FDA-Public Use
  Company Number: None

PATIENT
  Age: 68 Year
  Sex: Female
  Weight: 82.35 kg

DRUGS (1)
  1. LYNPARZA [Suspect]
     Active Substance: OLAPARIB
     Indication: OVARIAN CANCER RECURRENT
     Dosage: ?          QUANTITY:8 CAPSULE(S);?
     Route: 048
     Dates: start: 20170930, end: 20180430

REACTIONS (4)
  - Malignant neoplasm progression [None]
  - Ovarian cancer [None]
  - Drug ineffective [None]
  - Neoplasm malignant [None]

NARRATIVE: CASE EVENT DATE: 20180503
